FAERS Safety Report 9046262 (Version 1)
Quarter: 2013Q1

REPORT INFORMATION
  Report Type: Spontaneous
  Country: US (occurrence: US)
  Receive Date: 20130201
  Receipt Date: 20130201
  Transmission Date: 20140127
  Serious: No
  Sender: FDA-Public Use
  Company Number: US-009507513-1301USA011292

PATIENT
  Sex: Male

DRUGS (1)
  1. PEGINTRON [Suspect]
     Dosage: 120MCG/.5ML

REACTIONS (3)
  - Drug dose omission [Unknown]
  - Incorrect storage of drug [Unknown]
  - No adverse event [Unknown]
